FAERS Safety Report 5945975-4 (Version None)
Quarter: 2008Q4

REPORT INFORMATION
  Report Type: 
  Country: None (occurrence: None)
  Receive Date: 20081110
  Receipt Date: 20081030
  Transmission Date: 20090506
  Serious: Yes (Hospitalization)
  Sender: FDA-Public Use
  Company Number: SE-BAXTER-2008BH011631

PATIENT
  Age: 51 Year
  Sex: Female

DRUGS (1)
  1. EXTRANEAL [Suspect]
     Indication: RENAL FAILURE CHRONIC
     Route: 033
     Dates: start: 20080702, end: 20081017

REACTIONS (4)
  - ABDOMINAL PAIN [None]
  - MALAISE [None]
  - PERITONEAL CLOUDY EFFLUENT [None]
  - PYREXIA [None]
